FAERS Safety Report 25910225 (Version 2)
Quarter: 2025Q4

REPORT INFORMATION
  Report Type: Spontaneous
  Country: JP (occurrence: JP)
  Receive Date: 20251012
  Receipt Date: 20251024
  Transmission Date: 20260117
  Serious: Yes (Other)
  Sender: AMGEN
  Company Number: JP-KYOWAKIRIN-2025KK019182

PATIENT
  Age: 87 Year
  Sex: Male

DRUGS (3)
  1. DARBEPOETIN ALFA [Suspect]
     Active Substance: DARBEPOETIN ALFA
     Indication: Nephrogenic anaemia
     Dosage: 60 UG
     Route: 065
     Dates: start: 202506, end: 20250821
  2. DAPRODUSTAT [Suspect]
     Active Substance: DAPRODUSTAT
     Indication: Nephrogenic anaemia
     Dosage: 20 MG PER DAY
     Route: 048
     Dates: start: 202504, end: 202506
  3. DAPRODUSTAT [Suspect]
     Active Substance: DAPRODUSTAT
     Dosage: 20 MG PER DAY
     Route: 048
     Dates: start: 20251003

REACTIONS (2)
  - Chronic kidney disease [Unknown]
  - Off label use [Unknown]
